FAERS Safety Report 9707897 (Version 1)
Quarter: 2013Q4

REPORT INFORMATION
  Report Type: Spontaneous
  Country: US (occurrence: US)
  Receive Date: 20131125
  Receipt Date: 20131125
  Transmission Date: 20140711
  Serious: No
  Sender: FDA-Public Use
  Company Number: US-PFIZER INC-2013331821

PATIENT
  Age: 45 Year
  Sex: Female
  Weight: 68.03 kg

DRUGS (2)
  1. ADVIL [Suspect]
     Indication: ARTHRALGIA
     Dosage: 200 MG, DAILY
     Dates: start: 201311, end: 20131117
  2. ADVIL GELCAPS [Suspect]
     Indication: HEADACHE
     Dosage: UNK
     Dates: start: 20131118

REACTIONS (2)
  - Drug ineffective [Unknown]
  - Headache [Recovering/Resolving]
